FAERS Safety Report 9281752 (Version 2)
Quarter: 2013Q4

REPORT INFORMATION
  Report Type: Spontaneous
  Country: US (occurrence: US)
  Receive Date: 20130510
  Receipt Date: 20131016
  Transmission Date: 20140711
  Serious: Yes (Hospitalization)
  Sender: FDA-Public Use
  Company Number: US-B.I. PHARMACEUTICALS,INC./RIDGEFIELD-2013-BI-12726BP

PATIENT
  Age: 47 Year
  Sex: Male
  Weight: 111.13 kg

DRUGS (6)
  1. PRADAXA [Suspect]
     Indication: ANTICOAGULANT THERAPY
     Dosage: 150 MG
     Dates: start: 20110114, end: 20110427
  2. AVAPRO [Concomitant]
     Dosage: 150 MG
  3. KCL [Concomitant]
     Dosage: 20 MG
  4. FLECAINIDE [Concomitant]
     Dosage: 200 MG
  5. COREG [Concomitant]
     Dosage: 80 MG
     Dates: start: 2007, end: 2012
  6. LASIX [Concomitant]
     Dosage: 40 MG

REACTIONS (2)
  - Ischaemic stroke [Unknown]
  - Atrial thrombosis [Unknown]
